FAERS Safety Report 6163405-7 (Version None)
Quarter: 2009Q2

REPORT INFORMATION
  Report Type: 
  Country: None (occurrence: None)
  Receive Date: 20090420
  Receipt Date: 20090420
  Transmission Date: 20091009
  Serious: No
  Sender: FDA-Public Use
  Company Number: None

PATIENT
  Age: 56 Year
  Sex: Male
  Weight: 114.4 kg

DRUGS (25)
  1. VARENICLINE [Suspect]
     Indication: SMOKING CESSATION THERAPY
     Dosage: 1 MG BID PO
     Route: 048
     Dates: start: 20070321, end: 20080708
  2. ABSORBASE TOPICAL OINT [Concomitant]
  3. AMLODIPINE [Concomitant]
  4. ART TEARS PRES-FREE [Concomitant]
  5. ASPIRIN [Concomitant]
  6. CAPS AICIN [Concomitant]
  7. CHLORHEXIDINE ORAL RINSE (PERIDEX) [Concomitant]
  8. CLOBETASOL TOPICAL OINT [Concomitant]
  9. FREESTYLE BLOOD GLUCOSE TEST STRIP [Concomitant]
  10. GEMFIBROZIL [Concomitant]
  11. GLIPIZIDE [Concomitant]
  12. DEXTROSE 5% [Concomitant]
  13. HYDROQUINONE TOPICAL CR [Concomitant]
  14. LAC-HYDRIN [Concomitant]
  15. LISINOPRIL AND HYDROCHLOROTHIAZIDE [Concomitant]
  16. METFORMIN HCL [Concomitant]
  17. NOVOLIN NPH INSULIN PENFILL [Concomitant]
  18. OMEPRAZOLE [Concomitant]
  19. PETROLATUM HYDROPHYLLIC TOPICAL OINT [Concomitant]
  20. PREGABALIN [Concomitant]
  21. SIMVASTATIN [Concomitant]
  22. THERAPEUTIC VITAMINS + MINS CAP/TAB [Concomitant]
  23. TRETINOIN TOPICAL CR [Concomitant]
  24. TRIAMCINOLONE TOPICAL CREAM [Concomitant]
  25. VARDENAFIL HCL [Concomitant]

REACTIONS (1)
  - DEPRESSION [None]
